FAERS Safety Report 20735973 (Version 1)
Quarter: 2022Q2

REPORT INFORMATION
  Report Type: Spontaneous
  Country: US (occurrence: US)
  Receive Date: 20220421
  Receipt Date: 20220421
  Transmission Date: 20220720
  Serious: Yes (Death, Hospitalization, Other)
  Sender: FDA-Public Use
  Company Number: US-AMGEN-USASP2022064177

PATIENT

DRUGS (1)
  1. ARANESP [Suspect]
     Active Substance: DARBEPOETIN ALFA
     Indication: Anaemia
     Route: 065

REACTIONS (28)
  - Death [Fatal]
  - Malignant neoplasm progression [Fatal]
  - Neoplasm recurrence [Fatal]
  - Cardiovascular disorder [Fatal]
  - Adverse event [Unknown]
  - Cardiomyopathy [Unknown]
  - Retinopathy proliferative [Unknown]
  - Choroidal neovascularisation [Unknown]
  - Macular oedema [Unknown]
  - Gastritis erosive [Unknown]
  - Cardiac failure [Unknown]
  - Erosive oesophagitis [Unknown]
  - Ischaemia [Unknown]
  - Cerebrovascular accident [Unknown]
  - Thrombosis [Unknown]
  - Embolism [Unknown]
  - Vascular access site thrombosis [Unknown]
  - Myocardial infarction [Unknown]
  - Hypertension [Unknown]
  - Muscle spasms [Unknown]
  - Red blood cell count increased [Unknown]
  - Dialysis hypotension [Unknown]
  - Diarrhoea [Unknown]
  - Hypervolaemia [Unknown]
  - Headache [Unknown]
  - Upper respiratory tract infection [Unknown]
  - Hypotension [Unknown]
  - Nasopharyngitis [Unknown]
